FAERS Safety Report 21164037 (Version 2)
Quarter: 2022Q3

REPORT INFORMATION
  Report Type: Spontaneous
  Country: JP (occurrence: JP)
  Receive Date: 20220803
  Receipt Date: 20220808
  Transmission Date: 20221026
  Serious: Yes (Hospitalization)
  Sender: FDA-Public Use
  Company Number: JP-JNJFOC-20220804507

PATIENT
  Age: 85 Year
  Sex: Female

DRUGS (3)
  1. FENTANYL [Suspect]
     Active Substance: FENTANYL
     Indication: Pain
     Dosage: 12.5MCG/HR
     Route: 062
  2. FENTANYL [Suspect]
     Active Substance: FENTANYL
     Dosage: 12.5MCG/HR
     Route: 062
  3. FENTANYL CITRATE [Concomitant]
     Active Substance: FENTANYL CITRATE
     Indication: Pain
     Route: 062

REACTIONS (1)
  - Hospitalisation [Unknown]
